FAERS Safety Report 13463280 (Version 1)
Quarter: 2017Q2

REPORT INFORMATION
  Report Type: Spontaneous
  Country: US (occurrence: US)
  Receive Date: 20170420
  Receipt Date: 20170420
  Transmission Date: 20170830
  Serious: Yes (Other)
  Sender: FDA-Public Use
  Company Number: US-BRISTOL-MYERS SQUIBB COMPANY-BMS-2017-032635

PATIENT
  Sex: Male

DRUGS (2)
  1. COUMADINE [Suspect]
     Active Substance: WARFARIN SODIUM
     Indication: PRODUCT USED FOR UNKNOWN INDICATION
     Route: 048
  2. DOXYCYCLINE. [Interacting]
     Active Substance: DOXYCYCLINE
     Indication: ARTHRITIS INFECTIVE
     Dosage: UNK
     Route: 065

REACTIONS (4)
  - Arthritis infective [Unknown]
  - Labelled drug-drug interaction medication error [Unknown]
  - Renal failure [Unknown]
  - Haemorrhage [Unknown]
